FAERS Safety Report 8781508 (Version 1)
Quarter: 2012Q4

REPORT INFORMATION
  Report Type: 
  Country: US (occurrence: US)
  Receive Date: 20120913
  Receipt Date: 20120913
  Transmission Date: 20130627
  Serious: Yes (Other)
  Sender: FDA-Public Use
  Company Number: US-PFIZER INC-2012224360

PATIENT
  Sex: Female

DRUGS (2)
  1. ADVIL [Suspect]
     Indication: NEURALGIA
     Dosage: two unknown dose, 1x/day
     Dates: start: 20120907
  2. ADVIL [Suspect]
     Dosage: UNK, 1x/day
     Dates: end: 20120910

REACTIONS (3)
  - Haemorrhage [Unknown]
  - Unevaluable event [Unknown]
  - Drug intolerance [Unknown]
